FAERS Safety Report 11048245 (Version 1)
Quarter: 2015Q2

REPORT INFORMATION
  Report Type: Spontaneous
  Country: US (occurrence: US)
  Receive Date: 20150420
  Receipt Date: 20150420
  Transmission Date: 20150821
  Serious: Yes (Other)
  Sender: FDA-Public Use
  Company Number: US-ABBVIE-14P-163-1312508-00

PATIENT
  Age: 10 Year
  Sex: Male
  Weight: 32.8 kg

DRUGS (1)
  1. LUPRON DEPOT-PED [Suspect]
     Active Substance: LEUPROLIDE ACETATE
     Indication: PRECOCIOUS PUBERTY
     Route: 030
     Dates: start: 201403

REACTIONS (6)
  - Drug effect incomplete [Unknown]
  - Blood testosterone abnormal [Unknown]
  - Drug ineffective [Unknown]
  - Growth accelerated [Unknown]
  - Product quality issue [Unknown]
  - Drug administration error [Unknown]

NARRATIVE: CASE EVENT DATE: 20141115
